FAERS Safety Report 8399328-2 (Version None)
Quarter: 2012Q2

REPORT INFORMATION
  Report Type: 
  Country: None (occurrence: None)
  Receive Date: 20120531
  Receipt Date: 20120529
  Transmission Date: 20120825
  Serious: No
  Sender: FDA-Public Use
  Company Number: US-BAYER-2012-053420

PATIENT
  Age: 21 Year
  Sex: Female

DRUGS (1)
  1. MIRENA [Suspect]
     Dosage: 20 MCG/24HR, UNK
     Dates: start: 20120321

REACTIONS (4)
  - DISCOMFORT [None]
  - FEELING ABNORMAL [None]
  - MENSTRUATION IRREGULAR [None]
  - VAGINAL DISCHARGE [None]
